FAERS Safety Report 6202724-2 (Version None)
Quarter: 2009Q2

REPORT INFORMATION
  Report Type: 
  Country: None (occurrence: None)
  Receive Date: 20090526
  Receipt Date: 20090518
  Transmission Date: 20091009
  Serious: Yes (Other)
  Sender: FDA-Public Use
  Company Number: PHEH2009US04968

PATIENT
  Sex: Female
  Weight: 81.179 kg

DRUGS (2)
  1. ZOMETA [Suspect]
     Indication: METASTASES TO BONE
     Dosage: 4 MG, QMO
     Route: 042
     Dates: start: 20040616, end: 20080808
  2. ZOMETA [Suspect]
     Indication: BREAST CANCER

REACTIONS (3)
  - OSTEONECROSIS [None]
  - PAIN [None]
  - TOOTH EXTRACTION [None]
